FAERS Safety Report 16951975 (Version 1)
Quarter: 2019Q4

REPORT INFORMATION
  Report Type: Spontaneous
  Country: US (occurrence: US)
  Receive Date: 20191023
  Receipt Date: 20191023
  Transmission Date: 20200122
  Serious: No
  Sender: FDA-Public Use
  Company Number: US-TEVA-2019-US-1125091

PATIENT
  Sex: Female

DRUGS (1)
  1. AUSTEDO [Suspect]
     Active Substance: DEUTETRABENAZINE
     Indication: TARDIVE DYSKINESIA
     Dosage: 24 MILLIGRAM DAILY;  12MG TWICE DAILY; FIRST SHIPPED 08-JUL-19.
     Route: 048

REACTIONS (6)
  - Memory impairment [Unknown]
  - Heart rate increased [Unknown]
  - Blood pressure increased [Unknown]
  - Constipation [Unknown]
  - Fall [Unknown]
  - Anxiety [Unknown]
